FAERS Safety Report 4530397-3 (Version None)
Quarter: 2004Q4

REPORT INFORMATION
  Report Type: 
  Country: None (occurrence: None)
  Receive Date: 20041217
  Receipt Date: 20030729
  Transmission Date: 20050328
  Serious: Yes (Other)
  Sender: FDA-Public Use
  Company Number: US-ROCHE-343751

PATIENT
  Age: 45 Year
  Sex: Female
  Weight: 81.6 kg

DRUGS (3)
  1. XENICAL [Suspect]
     Indication: OBESITY
     Route: 048
     Dates: start: 20020615, end: 20021227
  2. XENICAL [Suspect]
     Route: 048
     Dates: start: 20041215
  3. TRIAMTERENE [Concomitant]
     Indication: HYPERTENSION
     Route: 048

REACTIONS (4)
  - FLATULENCE [None]
  - FREQUENT BOWEL MOVEMENTS [None]
  - STEATORRHOEA [None]
  - UTERINE DISORDER [None]
